FAERS Safety Report 5282296-X (Version None)
Quarter: 2007Q1

REPORT INFORMATION
  Report Type: 
  Country: None (occurrence: None)
  Receive Date: 20070331
  Receipt Date: 20070319
  Transmission Date: 20070707
  Serious: Yes (Other)
  Sender: FDA-Public Use
  Company Number: US-PFIZER INC-2007023658

PATIENT
  Sex: Male
  Weight: 69.9 kg

DRUGS (4)
  1. COLESTIPOL HYDROCHLORIDE GRANULES [Suspect]
  2. CHOLESTYRAMINE [Suspect]
     Indication: CROHN'S DISEASE
     Dosage: FREQ:1/2 SCOOPFUL DAILY
     Route: 048
  3. RIFABUTIN [Concomitant]
  4. CLARITHROMYCIN [Concomitant]
     Dates: start: 20060301

REACTIONS (1)
  - GAIT DISTURBANCE [None]
